FAERS Safety Report 12689881 (Version 1)
Quarter: 2016Q3

REPORT INFORMATION
  Report Type: Spontaneous
  Country: US (occurrence: US)
  Receive Date: 20160826
  Receipt Date: 20160826
  Transmission Date: 20161109
  Serious: No
  Sender: FDA-Public Use
  Company Number: US-BEH-2016072636

PATIENT
  Age: 40 Year
  Sex: Female
  Weight: 77.98 kg

DRUGS (24)
  1. EPINEPHRINE. [Concomitant]
     Active Substance: EPINEPHRINE
  2. PRILOSEC [Concomitant]
     Active Substance: OMEPRAZOLE MAGNESIUM
  3. SEREVENT DISKUS [Concomitant]
     Active Substance: SALMETEROL XINAFOATE
  4. ACETAMINOPHEN. [Concomitant]
     Active Substance: ACETAMINOPHEN
  5. DIPHENHYDRAMINE. [Concomitant]
     Active Substance: DIPHENHYDRAMINE
  6. ZYRTEC [Concomitant]
     Active Substance: CETIRIZINE HYDROCHLORIDE
  7. TOPAMAX [Concomitant]
     Active Substance: TOPIRAMATE
  8. CARAFATE [Concomitant]
     Active Substance: SUCRALFATE
  9. ZOLPIDEM                           /00914902/ [Concomitant]
     Active Substance: ZOLPIDEM\ZOLPIDEM TARTRATE
  10. FENTANYL. [Concomitant]
     Active Substance: FENTANYL
  11. SOMA [Concomitant]
     Active Substance: CARISOPRODOL
  12. ZANAFLEX [Concomitant]
     Active Substance: TIZANIDINE HYDROCHLORIDE
  13. SYNTHROID [Concomitant]
     Active Substance: LEVOTHYROXINE SODIUM
  14. PROVENTIL [Concomitant]
     Active Substance: ALBUTEROL
  15. HIZENTRA [Suspect]
     Active Substance: HUMAN IMMUNOGLOBULIN G
     Indication: IMMUNODEFICIENCY COMMON VARIABLE
     Dosage: 12 G, QW
     Route: 058
     Dates: start: 20150706
  16. PROZAC [Concomitant]
     Active Substance: FLUOXETINE HYDROCHLORIDE
  17. NITROFURANTOIN MONO/MAC [Concomitant]
     Active Substance: NITROFURANTOIN\NITROFURANTOIN MONOHYDRATE
  18. HIZENTRA [Suspect]
     Active Substance: HUMAN IMMUNOGLOBULIN G
     Dosage: UNK
     Route: 058
     Dates: start: 20160802
  19. LIDOCAINE. [Concomitant]
     Active Substance: LIDOCAINE
  20. BACTRIM [Concomitant]
     Active Substance: SULFAMETHOXAZOLE\TRIMETHOPRIM
  21. SINGULAIR [Concomitant]
     Active Substance: MONTELUKAST SODIUM
  22. XANAX [Concomitant]
     Active Substance: ALPRAZOLAM
  23. SPIRIVA [Concomitant]
     Active Substance: TIOTROPIUM BROMIDE MONOHYDRATE
  24. HYDROMORPHONE [Concomitant]
     Active Substance: HYDROMORPHONE

REACTIONS (2)
  - Pruritus generalised [Unknown]
  - Eye pruritus [Unknown]

NARRATIVE: CASE EVENT DATE: 20160802
